FAERS Safety Report 14318976 (Version 1)
Quarter: 2017Q4

REPORT INFORMATION
  Report Type: Spontaneous
  Country: US (occurrence: US)
  Receive Date: 20171222
  Receipt Date: 20171222
  Transmission Date: 20180321
  Serious: Yes (Other)
  Sender: FDA-Public Use
  Company Number: US-JNJFOC-20171229270

PATIENT
  Age: 65 Year
  Sex: Male

DRUGS (6)
  1. LASIX [Concomitant]
     Active Substance: FUROSEMIDE
     Route: 065
  2. METOPROLOL. [Concomitant]
     Active Substance: METOPROLOL
  3. IMBRUVICA [Suspect]
     Active Substance: IBRUTINIB
     Indication: B-CELL SMALL LYMPHOCYTIC LYMPHOMA
     Route: 048
     Dates: start: 20170927
  4. CELEXA [Concomitant]
     Active Substance: CITALOPRAM HYDROBROMIDE
  5. SYNTHROID [Concomitant]
     Active Substance: LEVOTHYROXINE SODIUM
  6. TYLENOL [Concomitant]
     Active Substance: ACETAMINOPHEN

REACTIONS (28)
  - Weight decreased [Unknown]
  - Eye pruritus [Unknown]
  - Lymphopenia [Unknown]
  - Back pain [Unknown]
  - Chills [Unknown]
  - Nausea [Unknown]
  - Anxiety [Unknown]
  - Ocular hyperaemia [Unknown]
  - Muscular weakness [Unknown]
  - Constipation [Not Recovered/Not Resolved]
  - Abdominal pain [Unknown]
  - Lacrimation increased [Unknown]
  - Decreased appetite [Unknown]
  - Cardiomyopathy [Unknown]
  - Cardiac failure congestive [Unknown]
  - Monocytosis [Unknown]
  - Paraesthesia [Unknown]
  - Asthenia [Unknown]
  - Myalgia [Unknown]
  - Dyspnoea [Unknown]
  - Productive cough [Unknown]
  - Insomnia [Unknown]
  - Chest pain [Unknown]
  - Diarrhoea [Unknown]
  - Pleural effusion [Not Recovered/Not Resolved]
  - Temperature intolerance [Unknown]
  - Depression [Unknown]
  - Hypoaesthesia [Unknown]

NARRATIVE: CASE EVENT DATE: 2017
